FAERS Safety Report 24958916 (Version 1)
Quarter: 2025Q1

REPORT INFORMATION
  Report Type: Other
  Country: IN (occurrence: IN)
  Receive Date: 20250212
  Receipt Date: 20250212
  Transmission Date: 20250408
  Serious: Yes (Death)
  Sender: ESJAY PHARMA
  Company Number: IN-ESJAY PHARMA-000117

PATIENT
  Age: 55 Year
  Sex: Male

DRUGS (1)
  1. IMATINIB [Suspect]
     Active Substance: IMATINIB
     Indication: Philadelphia positive chronic myeloid leukaemia

REACTIONS (1)
  - Treatment failure [Fatal]
